FAERS Safety Report 12784303 (Version 1)
Quarter: 2016Q3

REPORT INFORMATION
  Report Type: Spontaneous
  Country: DE (occurrence: DE)
  Receive Date: 20160927
  Receipt Date: 20160927
  Transmission Date: 20161109
  Serious: Yes (Other)
  Sender: FDA-Public Use
  Company Number: DE-BEH-200208326

PATIENT
  Age: 73 Year
  Sex: Female
  Weight: 65 kg

DRUGS (1)
  1. FIBROGAMMIN P [Suspect]
     Active Substance: FACTOR XIII CONCENTRATE (HUMAN)
     Indication: SKIN ULCER
     Dosage: DAILY DOSE QUANTITY: 250, DAILY DOSE UNIT: U
     Route: 061
     Dates: start: 20010802, end: 20010810

REACTIONS (2)
  - Dermatitis bullous [Recovered/Resolved]
  - Inflammation of wound [Recovered/Resolved]

NARRATIVE: CASE EVENT DATE: 20010810
